FAERS Safety Report 6463188-7 (Version None)
Quarter: 2009Q4

REPORT INFORMATION
  Report Type: 
  Country: None (occurrence: None)
  Receive Date: 20091124
  Receipt Date: 20091116
  Transmission Date: 20100525
  Serious: Yes (Death, Hospitalization)
  Sender: FDA-Public Use
  Company Number: 2009AC000181

PATIENT
  Age: 63 Year
  Sex: Male

DRUGS (44)
  1. DIGOXIN [Suspect]
     Indication: CARDIAC FAILURE CHRONIC
     Dosage: 0.125 MG; PO
     Route: 048
  2. REGLAN [Concomitant]
  3. COLACE [Concomitant]
  4. COGENTIN [Concomitant]
  5. REQUIP [Concomitant]
  6. LOPRESSOR [Concomitant]
  7. AMBIEN [Concomitant]
  8. MULTI-VITAMINS [Concomitant]
  9. ASCORBIC ACID [Concomitant]
  10. LASIX [Concomitant]
  11. POTASSIUM CHLORIDE [Concomitant]
  12. EFFEXOR [Concomitant]
  13. MIRALAX [Concomitant]
  14. PROTONIX [Concomitant]
  15. XANAX [Concomitant]
  16. ARTHROTEC [Concomitant]
  17. STALEVO 100 [Concomitant]
  18. ALBUTEROL [Concomitant]
  19. OXYGEN [Concomitant]
  20. TYLENOL (CAPLET) [Concomitant]
  21. DULCOLAX [Concomitant]
  22. XOPENEX [Concomitant]
  23. ANGARD [Concomitant]
  24. FLEXERIL [Concomitant]
  25. LEVAQUIN [Concomitant]
  26. VANCOMYCIN [Concomitant]
  27. MAXIPIME [Concomitant]
  28. CYMBALTA [Concomitant]
  29. OMEPRAZOLE [Concomitant]
  30. BENEFIBER [Concomitant]
  31. PULMICORT [Concomitant]
  32. ZOLPIDEM [Concomitant]
  33. NEXIUM [Concomitant]
  34. ALPRAZOLAM [Concomitant]
  35. AMOXICILLIN [Concomitant]
  36. VENLAFAXINE HCL [Concomitant]
  37. AMBIEN [Concomitant]
  38. DEMEROL [Concomitant]
  39. VISTARIL [Concomitant]
  40. BENTYL [Concomitant]
  41. SENOKOT [Concomitant]
  42. MAALOX [Concomitant]
  43. REMERON [Concomitant]
  44. TYLENOL (CAPLET) [Concomitant]

REACTIONS (31)
  - ANHEDONIA [None]
  - ANXIETY [None]
  - ATRIAL FIBRILLATION [None]
  - BENIGN PROSTATIC HYPERPLASIA [None]
  - CARDIOPULMONARY FAILURE [None]
  - CHEST INJURY [None]
  - CONFUSIONAL STATE [None]
  - CORONARY ARTERY DISEASE [None]
  - COUGH [None]
  - DEPRESSION [None]
  - DIZZINESS [None]
  - FALL [None]
  - FOOT DEFORMITY [None]
  - GASTROOESOPHAGEAL REFLUX DISEASE [None]
  - HALLUCINATION [None]
  - HEART RATE INCREASED [None]
  - INSOMNIA [None]
  - NEUROGENIC BLADDER [None]
  - PAIN [None]
  - PEPTIC ULCER [None]
  - PNEUMONIA [None]
  - PULMONARY CONGESTION [None]
  - PYREXIA [None]
  - SOMNOLENCE [None]
  - SYNOVIAL CYST [None]
  - TENOSYNOVITIS [None]
  - THERAPEUTIC AGENT TOXICITY [None]
  - UNRESPONSIVE TO STIMULI [None]
  - URINARY RETENTION [None]
  - URINARY TRACT INFECTION [None]
  - WHEEZING [None]
